FAERS Safety Report 4535216-7 (Version None)
Quarter: 2004Q4

REPORT INFORMATION
  Report Type: 
  Country: None (occurrence: None)
  Receive Date: 20041214
  Receipt Date: 20041011
  Transmission Date: 20050328
  Serious: No
  Sender: FDA-Public Use
  Company Number: 2004238477US

PATIENT
  Sex: Female
  Weight: 64.9 kg

DRUGS (3)
  1. BEXTRA [Suspect]
     Indication: ARTHRITIS
     Dosage: 20 MG, QD, ORAL
     Route: 048
     Dates: start: 20041001, end: 20041003
  2. QUININE SULFATE [Concomitant]
  3. HYDROCODONE  (HYDROCODONE) [Concomitant]

REACTIONS (3)
  - DIARRHOEA [None]
  - NERVOUSNESS [None]
  - PSYCHOMOTOR HYPERACTIVITY [None]
